FAERS Safety Report 7121483-2 (Version None)
Quarter: 2010Q4

REPORT INFORMATION
  Report Type: 
  Country: None (occurrence: None)
  Receive Date: 20101119
  Receipt Date: 20101119
  Transmission Date: 20110411
  Serious: No
  Sender: FDA-Public Use
  Company Number: None

PATIENT
  Sex: Male

DRUGS (1)
  1. HUMIRA [Suspect]
     Indication: CROHN'S DISEASE
     Dosage: 40 MG EVERY OTHER WEEK SQ
     Route: 058
     Dates: start: 20100401, end: 20101001

REACTIONS (2)
  - ARTHRALGIA [None]
  - VISUAL IMPAIRMENT [None]
